FAERS Safety Report 14283363 (Version 1)
Quarter: 2017Q4

REPORT INFORMATION
  Report Type: Report from Study
  Country: IL (occurrence: IL)
  Receive Date: 20171213
  Receipt Date: 20171213
  Transmission Date: 20180321
  Serious: Yes (Death, Other)
  Sender: FDA-Public Use
  Company Number: PHHY2017IL130087

PATIENT
  Age: 34 Year
  Sex: Female

DRUGS (1)
  1. AFINITOR [Suspect]
     Active Substance: EVEROLIMUS
     Indication: BREAST CANCER
     Dosage: UNK, QD
     Route: 048
     Dates: start: 201102, end: 201106

REACTIONS (19)
  - Wound [Unknown]
  - Dyskinesia [Recovered/Resolved]
  - Visual impairment [Unknown]
  - Pyrexia [Unknown]
  - Breast cancer [Not Recovered/Not Resolved]
  - Gingival disorder [Unknown]
  - Dysphagia [Recovered/Resolved]
  - Hypertension [Unknown]
  - Death [Fatal]
  - Bone pain [Unknown]
  - Stomatitis [Recovered/Resolved]
  - Drug ineffective [Unknown]
  - Speech disorder [Unknown]
  - Anxiety [Unknown]
  - Asthenia [Unknown]
  - Malignant neoplasm progression [Not Recovered/Not Resolved]
  - Pneumonia [Unknown]
  - Rash [Unknown]
  - Dyspnoea [Unknown]
